FAERS Safety Report 7991365-2 (Version None)
Quarter: 2011Q4

REPORT INFORMATION
  Report Type: 
  Country: None (occurrence: None)
  Receive Date: 20111219
  Receipt Date: 20111216
  Transmission Date: 20120403
  Serious: Yes (Other)
  Sender: FDA-Public Use
  Company Number: US-PFIZER INC-2011234418

PATIENT
  Sex: Male
  Weight: 77.098 kg

DRUGS (12)
  1. ASPIRIN [Concomitant]
     Indication: BACK PAIN
  2. MIRTAZAPINE [Concomitant]
     Indication: SLEEP DISORDER
     Dosage: UNK, DAILY
  3. CHANTIX [Suspect]
     Indication: SMOKING CESSATION THERAPY
     Dosage: 0.5 MG, 1X/DAY
     Route: 048
     Dates: start: 20110901, end: 20110901
  4. IBUPROFEN [Concomitant]
     Indication: BACK PAIN
  5. CHANTIX [Suspect]
     Dosage: 1 MG, 2X/DAY
     Route: 048
     Dates: start: 20110901, end: 20110101
  6. CHANTIX [Suspect]
     Dosage: 0.5 MG, 2X/DAY
     Route: 048
     Dates: start: 20110101, end: 20110101
  7. IBUPROFEN [Concomitant]
     Indication: HEADACHE
     Dosage: UNK, AS NEEDED
  8. CHANTIX [Suspect]
     Dosage: UNK
     Route: 048
     Dates: start: 20110101, end: 20110101
  9. CHANTIX [Suspect]
     Dosage: 1 MG, 2X/DAY
     Route: 048
     Dates: start: 20110101
  10. ASPIRIN [Concomitant]
     Indication: HEADACHE
     Dosage: UNK
  11. TRAZODONE [Concomitant]
     Indication: SLEEP DISORDER
     Dosage: 50 MG, DAILY, AS NEEDED
  12. OXYCODONE [Concomitant]
     Dosage: UNK

REACTIONS (20)
  - DISORIENTATION [None]
  - STRESS [None]
  - FEELING JITTERY [None]
  - COUGH [None]
  - DYSPHONIA [None]
  - IMPAIRED SELF-CARE [None]
  - IRRITABILITY [None]
  - MALAISE [None]
  - ANXIETY [None]
  - ANGER [None]
  - DYSGEUSIA [None]
  - MOOD ALTERED [None]
  - DRUG EFFECT DECREASED [None]
  - FEELING ABNORMAL [None]
  - BOREDOM [None]
  - THROAT TIGHTNESS [None]
  - WEIGHT INCREASED [None]
  - DRUG DEPENDENCE [None]
  - INSOMNIA [None]
  - EMOTIONAL DISORDER [None]
